FAERS Safety Report 7453419-9 (Version None)
Quarter: 2011Q2

REPORT INFORMATION
  Report Type: 
  Country: None (occurrence: None)
  Receive Date: 20110502
  Receipt Date: 20110127
  Transmission Date: 20111010
  Serious: No
  Sender: FDA-Public Use
  Company Number: US-ASTRAZENECA-2011SE05089

PATIENT
  Age: 27 Year
  Sex: Female

DRUGS (1)
  1. NEXIUM [Suspect]
     Route: 048

REACTIONS (6)
  - EYE PAIN [None]
  - MULTIPLE ALLERGIES [None]
  - HEADACHE [None]
  - PAIN IN EXTREMITY [None]
  - CHEST PAIN [None]
  - STRESS [None]
